FAERS Safety Report 9802498 (Version 3)
Quarter: 2014Q1

REPORT INFORMATION
  Report Type: Report from Study
  Country: AU (occurrence: AU)
  Receive Date: 20140107
  Receipt Date: 20140305
  Transmission Date: 20141002
  Serious: Yes (Hospitalization)
  Sender: FDA-Public Use
  Company Number: AU-ROCHE-1328843

PATIENT
  Age: 72 Year
  Sex: Male

DRUGS (1)
  1. ACTEMRA [Suspect]
     Indication: RHEUMATOID ARTHRITIS
     Route: 042
     Dates: start: 20130418, end: 20131205

REACTIONS (3)
  - Sepsis [Recovering/Resolving]
  - Staphylococcal infection [Recovering/Resolving]
  - Arthralgia [Unknown]
